FAERS Safety Report 4890766-9 (Version None)
Quarter: 2006Q1

REPORT INFORMATION
  Report Type: 
  Country: None (occurrence: None)
  Receive Date: 20060123
  Receipt Date: 20060116
  Transmission Date: 20060701
  Serious: Yes (Hospitalization, Other)
  Sender: FDA-Public Use
  Company Number: 2006-01-0975

PATIENT
  Age: 45 Year
  Sex: Male

DRUGS (7)
  1. PEG-INTRON [Suspect]
     Indication: HEPATITIS C
     Dosage: 150 MCG QWK SUBCUTANEOUS
     Route: 058
     Dates: start: 20050930, end: 20060101
  2. RIBAVIRIN [Suspect]
     Indication: HEPATITIS C
     Dosage: 600 MG BID ORAL
     Route: 048
     Dates: start: 20050930, end: 20060115
  3. PROZAC [Concomitant]
  4. DARVON [Concomitant]
  5. ATENOLOL [Concomitant]
  6. XANAX [Concomitant]
  7. EPOGEN [Concomitant]

REACTIONS (12)
  - ACTIVATED PARTIAL THROMBOPLASTIN TIME PROLONGED [None]
  - AGITATION [None]
  - ANAEMIA [None]
  - DEEP VEIN THROMBOSIS [None]
  - FACIAL PALSY [None]
  - FEELING ABNORMAL [None]
  - FIBRIN D DIMER INCREASED [None]
  - INTERNATIONAL NORMALISED RATIO DECREASED [None]
  - IRRITABILITY [None]
  - NEUTROPENIA [None]
  - PROTHROMBIN TIME PROLONGED [None]
  - TRANSIENT ISCHAEMIC ATTACK [None]
